FAERS Safety Report 9236573 (Version 1)
Quarter: 2013Q2

REPORT INFORMATION
  Report Type: Spontaneous
  Country: JP (occurrence: JP)
  Receive Date: 20130417
  Receipt Date: 20130417
  Transmission Date: 20140414
  Serious: Yes (Other)
  Sender: FDA-Public Use
  Company Number: JP-ROCHE-1204776

PATIENT
  Age: 87 Year
  Sex: Male
  Weight: 48 kg

DRUGS (3)
  1. MIRCERA [Suspect]
     Indication: NEPHROGENIC ANAEMIA
     Route: 058
     Dates: start: 20130131, end: 20130307
  2. NORVASC [Concomitant]
     Indication: HYPERTENSION
     Dosage: DOSAGE IS UNCERTAIN.
     Route: 048
     Dates: start: 20120827
  3. KREMEZIN [Concomitant]
     Indication: RENAL FAILURE
     Dosage: DOSAGE IS UNCERTAIN.
     Route: 048
     Dates: start: 20121220

REACTIONS (1)
  - Urticaria [Recovered/Resolved]
